FAERS Safety Report 9258594 (Version 1)
Quarter: 2013Q2

REPORT INFORMATION
  Report Type: Spontaneous
  Country: US (occurrence: None)
  Receive Date: 20130425
  Receipt Date: 20130425
  Transmission Date: 20140414
  Serious: Yes (Life-Threatening, Hospitalization)
  Sender: FDA-Public Use
  Company Number: None

PATIENT
  Age: 46 Year
  Sex: Male
  Weight: 115.89 kg

DRUGS (13)
  1. DIVALPROEX SODIUM [Suspect]
     Indication: AFFECTIVE DISORDER
     Route: 048
     Dates: start: 20121017, end: 20121026
  2. BABY ASPIRIN [Concomitant]
  3. OMEPRAZOLE [Concomitant]
  4. BENICAR [Concomitant]
  5. RISPERDAL [Concomitant]
  6. COGENTIN [Concomitant]
  7. DEPAKOTE ER [Concomitant]
  8. PROPRANOLOL [Concomitant]
  9. TRAZODONE [Concomitant]
  10. LACTULOSE [Concomitant]
  11. CLONAZEPAM [Concomitant]
  12. FLUOXETINE [Concomitant]
  13. NICOTINE GUM [Concomitant]

REACTIONS (6)
  - Confusional state [None]
  - Agitation [None]
  - Hallucination [None]
  - Dysarthria [None]
  - Flat affect [None]
  - Delirium [None]
